FAERS Safety Report 20024053 (Version 1)
Quarter: 2021Q4

REPORT INFORMATION
  Report Type: Spontaneous
  Country: DE (occurrence: DE)
  Receive Date: 20211102
  Receipt Date: 20211102
  Transmission Date: 20220303
  Serious: Yes (Hospitalization)
  Sender: FDA-Public Use
  Company Number: DE-ADRED-06771-01

PATIENT
  Age: 76 Year
  Sex: Male
  Weight: 70 kg

DRUGS (11)
  1. CLOPIDOGREL [Suspect]
     Active Substance: CLOPIDOGREL BISULFATE
     Indication: Product used for unknown indication
     Dosage: 75 MILLIGRAM, QD (75 MG, 1-0-0-0, TABLET)
     Route: 048
  2. OXALIPLATIN [Suspect]
     Active Substance: OXALIPLATIN
     Indication: Product used for unknown indication
     Dosage: BY REGIMEN, SOLUTION FOR INJECTION/INFUSION
     Route: 042
  3. FLUOROURACIL [Suspect]
     Active Substance: FLUOROURACIL
     Indication: Product used for unknown indication
     Dosage: BY REGIMEN, SOLUTION FOR INJECTION/INFUSION
     Route: 042
  4. LEUCOVORIN CALCIUM [Suspect]
     Active Substance: LEUCOVORIN CALCIUM
     Indication: Product used for unknown indication
     Dosage: BY REGIMEN, SOLUTION FOR INJECTION/INFUSION
     Route: 042
  5. METOCLOPRAMIDE [Concomitant]
     Active Substance: METOCLOPRAMIDE
     Dosage: 10 MILLIGRAM, TID (10 MG, UP TO THREE TIMES DAILY FOR NAUSEA, TABLETS)
     Route: 048
  6. RAMIPRIL [Concomitant]
     Active Substance: RAMIPRIL
     Dosage: 5 MILLIGRAM, BID (5 MG, 1-0-1-0, TABLETTEN)
     Route: 048
  7. EZETIMIBE [Concomitant]
     Active Substance: EZETIMIBE
     Dosage: 10 MILLIGRAM, QD (10 MG, 0-0-1-0, TABLETTEN)
     Route: 048
  8. ESOMEPRAZOLE MAGNESIUM [Concomitant]
     Active Substance: ESOMEPRAZOLE MAGNESIUM
     Dosage: 40 MILLIGRAM, BID (20 MG, 2-0-2-0, TABLETTEN)
     Route: 048
  9. ATORVASTATIN [Concomitant]
     Active Substance: ATORVASTATIN
     Dosage: 40 MILLIGRAM, QD (40 MG, 0-0-1-0, TABLETTEN)
     Route: 048
  10. AMLODIPINE BESYLATE [Concomitant]
     Active Substance: AMLODIPINE BESYLATE
     Dosage: 5 MILLIGRAM, QD (5 MG, 1-0-0-0, TABLETTEN)
     Route: 048
  11. SULFASALAZINE DELAYED-RELEASE [Concomitant]
     Active Substance: SULFASALAZINE
     Dosage: 1 GRAM, Q8H (1 G, 1-1-1-0, TABLETTEN)
     Route: 048

REACTIONS (6)
  - General physical health deterioration [Unknown]
  - Fatigue [Unknown]
  - Pain [Unknown]
  - Haematuria [Unknown]
  - Pain in extremity [Unknown]
  - Anaemia [Unknown]
